FAERS Safety Report 16533740 (Version 1)
Quarter: 2019Q3

REPORT INFORMATION
  Report Type: Spontaneous
  Country: JP (occurrence: JP)
  Receive Date: 20190705
  Receipt Date: 20190705
  Transmission Date: 20191004
  Serious: Yes (Life-Threatening, Other)
  Sender: FDA-Public Use
  Company Number: JP-009507513-1907JPN000467J

PATIENT
  Age: 69 Year
  Sex: Male
  Weight: 53 kg

DRUGS (2)
  1. ESLAX INTRAVENOUS 25MG/2.5ML [Suspect]
     Active Substance: ROCURONIUM BROMIDE
     Indication: NEUROMUSCULAR BLOCKING THERAPY
     Dosage: 207 MILLIGRAM
     Route: 042
     Dates: start: 20190617, end: 20190617
  2. BRIDION [Suspect]
     Active Substance: SUGAMMADEX
     Dosage: 200 MILLIGRAM
     Route: 042
     Dates: start: 20190617, end: 20190617

REACTIONS (4)
  - Respiratory failure [Recovered/Resolved]
  - Depressed level of consciousness [Recovered/Resolved]
  - Metabolic acidosis [Unknown]
  - Dysarthria [Unknown]

NARRATIVE: CASE EVENT DATE: 20190617
